FAERS Safety Report 15022676 (Version 1)
Quarter: 2018Q2

REPORT INFORMATION
  Report Type: Spontaneous
  Country: GB (occurrence: GB)
  Receive Date: 20180618
  Receipt Date: 20180618
  Transmission Date: 20180711
  Serious: Yes (Disabling, Other)
  Sender: FDA-Public Use
  Company Number: GB-PFIZER INC-2018240464

PATIENT
  Age: 86 Year
  Sex: Female
  Weight: 84 kg

DRUGS (14)
  1. DOXYCYCLINE MONOHYDRATE [Suspect]
     Active Substance: DOXYCYCLINE
     Dosage: UNK
     Dates: start: 20180504
  2. SALBUTAMOL [Concomitant]
     Active Substance: ALBUTEROL
     Dosage: 2 DF, AS NEEDED (MAXIMUM 4 TIMES A DAY)
     Route: 055
     Dates: start: 20180427
  3. IBUPROFEN. [Concomitant]
     Active Substance: IBUPROFEN
     Dosage: 3 DF, 1X/DAY(APPLY)
     Dates: start: 20171130
  4. CLARITHROMYCIN. [Concomitant]
     Active Substance: CLARITHROMYCIN
     Dosage: 1 DF, 2X/DAY (OMIT SIMVASTATIN WHILST ON.)
     Dates: start: 20180504
  5. SIMVASTATIN. [Concomitant]
     Active Substance: SIMVASTATIN
     Dosage: 1 DF, 1X/DAY (EACH EVENING)
     Dates: start: 20170215
  6. PARACETAMOL [Concomitant]
     Active Substance: ACETAMINOPHEN
     Dosage: 8 DF, 1X/DAY
     Dates: start: 20170215
  7. BUPRENORPHINE. [Concomitant]
     Active Substance: BUPRENORPHINE
     Dosage: 1 DF, WEEKLY (APPLY)
     Dates: start: 20170216
  8. AMOXICILLIN. [Concomitant]
     Active Substance: AMOXICILLIN
     Dosage: 3 DF, 1X/DAY
     Dates: start: 20180418, end: 20180425
  9. SERTRALINE [Concomitant]
     Active Substance: SERTRALINE HYDROCHLORIDE
     Dosage: 1 DF, 1X/DAY (EACH MORNING)
     Dates: start: 20170215
  10. HUMALOG [Concomitant]
     Active Substance: INSULIN LISPRO
     Dosage: 24 IU, DAILY(14 UNITS WITH BREAKFAST AND 10 UNITS WITH SUPPER)
     Dates: start: 20170215
  11. OMEPRAZOLE. [Concomitant]
     Active Substance: OMEPRAZOLE
     Dosage: 1 DF, 1X/DAY
     Dates: start: 20170331
  12. AMLODIPINE [Concomitant]
     Active Substance: AMLODIPINE BESYLATE
     Dosage: 1 DF, 1X/DAY
     Dates: start: 20180323
  13. DIPROBASE /01132701/ [Concomitant]
     Dosage: 2 DF, 1X/DAY (APPLY)
     Dates: start: 20170227, end: 20180327
  14. CEFALEXIN [Concomitant]
     Active Substance: CEPHALEXIN
     Dosage: 3 DF, 1X/DAY
     Dates: start: 20180319, end: 20180326

REACTIONS (2)
  - Vomiting [Recovering/Resolving]
  - Hypoglycaemia [Unknown]

NARRATIVE: CASE EVENT DATE: 20180504
